FAERS Safety Report 16570547 (Version 1)
Quarter: 2019Q3

REPORT INFORMATION
  Report Type: Spontaneous
  Country: US (occurrence: US)
  Receive Date: 20190531
  Receipt Date: 20190531
  Transmission Date: 20191004
  Serious: Yes (Hospitalization)
  Sender: FDA-Public Use
  Company Number: None

PATIENT
  Age: 71 Year
  Sex: Male
  Weight: 92 kg

DRUGS (1)
  1. DAPTOMYCIN. [Suspect]
     Active Substance: DAPTOMYCIN
     Indication: OSTEOMYELITIS
     Route: 042
     Dates: start: 20180222, end: 20180324

REACTIONS (8)
  - Hypotension [None]
  - Hepatic cirrhosis [None]
  - Urinary tract infection [None]
  - Peritonitis [None]
  - Drug-induced liver injury [None]
  - Acute kidney injury [None]
  - Malignant ascites [None]
  - Blood loss anaemia [None]

NARRATIVE: CASE EVENT DATE: 20180313
